FAERS Safety Report 9845977 (Version 1)
Quarter: 2013Q4

REPORT INFORMATION
  Report Type: Spontaneous
  Country: US (occurrence: None)
  Receive Date: 20131219
  Receipt Date: 20131219
  Transmission Date: 20140711
  Serious: Yes (Hospitalization)
  Sender: FDA-Public Use
  Company Number: 163-20785-13042850

PATIENT
  Age: 62 Year
  Sex: Male

DRUGS (5)
  1. THALOMID (THALIDOMIDE) (CAPSULES) [Suspect]
     Indication: PLASMA CELL MYELOMA
     Dosage: 200 MG, 21 IN 21 D, PO
     Dates: start: 20060603, end: 20061018
  2. MELPHALAN (MELPHALON) [Concomitant]
  3. PREDNISONE (PREDNISONE) [Concomitant]
  4. DEXAMETHASONE (DEXAMETHASONE) [Concomitant]
  5. CYCLOPHOSPHAMIDE) (CYCLOPHOSPHAMIDE) [Concomitant]

REACTIONS (1)
  - Plasma cell myeloma [None]
